FAERS Safety Report 5309653-7 (Version None)
Quarter: 2007Q2

REPORT INFORMATION
  Report Type: 
  Country: None (occurrence: None)
  Receive Date: 20070427
  Receipt Date: 20060808
  Transmission Date: 20071010
  Serious: Yes (Hospitalization)
  Sender: FDA-Public Use
  Company Number: US-GLAXOSMITHKLINE-A0615775A

PATIENT
  Age: 52 Year
  Sex: Male

DRUGS (4)
  1. DEXEDRINE [Suspect]
     Indication: ATTENTION DEFICIT/HYPERACTIVITY DISORDER
     Route: 048
  2. WELLBUTRIN [Concomitant]
  3. KLONOPIN [Concomitant]
  4. LEVITRA [Concomitant]

REACTIONS (1)
  - DRUG INEFFECTIVE [None]
